FAERS Safety Report 4356221-X (Version None)
Quarter: 2004Q2

REPORT INFORMATION
  Report Type: 
  Country: None (occurrence: None)
  Receive Date: 20040511
  Receipt Date: 20040408
  Transmission Date: 20050107
  Serious: Yes (Other)
  Sender: FDA-Public Use
  Company Number: US-MERCK-0404USA01069

PATIENT
  Age: 3 Year
  Sex: Male
  Weight: 17 kg

DRUGS (5)
  1. PULMICORT [Concomitant]
     Route: 065
     Dates: end: 20040217
  2. SINGULAIR [Suspect]
     Indication: ASTHMA
     Route: 048
     Dates: end: 20040224
  3. SINGULAIR [Suspect]
     Route: 048
     Dates: start: 20040225, end: 20040225
  4. SINGULAIR [Suspect]
     Indication: COUGH
     Route: 048
     Dates: end: 20040224
  5. SINGULAIR [Suspect]
     Route: 048
     Dates: start: 20040225, end: 20040225

REACTIONS (7)
  - CHEST DISCOMFORT [None]
  - COUGH [None]
  - DYSPNOEA [None]
  - EPISTAXIS [None]
  - ERYTHEMA [None]
  - NASAL DISCOMFORT [None]
  - RASH [None]
